FAERS Safety Report 10785764 (Version 2)
Quarter: 2015Q2

REPORT INFORMATION
  Report Type: Spontaneous
  Country: US (occurrence: None)
  Receive Date: 20150209
  Receipt Date: 20150506
  Transmission Date: 20150821
  Serious: Yes (Life-Threatening, Hospitalization, Other)
  Sender: FDA-Public Use
  Company Number: ADR-2010-8834

PATIENT
  Age: 35 Year
  Sex: Male

DRUGS (3)
  1. LIORESAL [Suspect]
     Active Substance: BACLOFEN
     Indication: MUSCLE SPASTICITY
  2. DILAUDID [Suspect]
     Active Substance: HYDROMORPHONE HYDROCHLORIDE
  3. BUPIVICAINE [Suspect]
     Active Substance: BUPIVACAINE

REACTIONS (13)
  - Abdominal infection [None]
  - Accidental overdose [None]
  - Incorrect route of drug administration [None]
  - No therapeutic response [None]
  - Lymphadenopathy [None]
  - Implant site haemorrhage [None]
  - Skin disorder [None]
  - Drug dose omission [None]
  - Implant site pain [None]
  - Anaemia [None]
  - Fear of death [None]
  - Withdrawal syndrome [None]
  - Cardio-respiratory arrest [None]
